FAERS Safety Report 14174393 (Version 2)
Quarter: 2018Q1

REPORT INFORMATION
  Report Type: Spontaneous
  Country: SE (occurrence: SE)
  Receive Date: 20171109
  Receipt Date: 20180307
  Transmission Date: 20180508
  Serious: Yes (Life-Threatening, Other)
  Sender: FDA-Public Use
  Company Number: SE-CELGENEUS-SWE-20171100796

PATIENT
  Age: 68 Year
  Sex: Female

DRUGS (2)
  1. REVLIMID [Suspect]
     Active Substance: LENALIDOMIDE
     Indication: PLASMA CELL MYELOMA
     Dosage: 25 MG X 1 I 3 VECKOR, UPPEH?LL 4:E VECKAN.
     Route: 048
     Dates: start: 20150914, end: 20161201
  2. REVLIMID [Suspect]
     Active Substance: LENALIDOMIDE
     Indication: HYPERCALCAEMIA

REACTIONS (1)
  - Nasal sinus cancer [Not Recovered/Not Resolved]

NARRATIVE: CASE EVENT DATE: 20161201
